FAERS Safety Report 5897389-3 (Version None)
Quarter: 2008Q3

REPORT INFORMATION
  Report Type: 
  Country: None (occurrence: None)
  Receive Date: 20080915
  Receipt Date: 20070806
  Transmission Date: 20090109
  Serious: Yes (Hospitalization)
  Sender: FDA-Public Use
  Company Number: PHEH2007US09698

PATIENT
  Age: 41 Year
  Sex: Female
  Weight: 46.3 kg

DRUGS (4)
  1. ZELNORM [Suspect]
     Indication: GASTRIC HYPOMOTILITY
     Dosage: 6 MG, BID, ORAL
     Route: 048
  2. REGLAN [Concomitant]
  3. CARAFATE [Concomitant]
  4. PROTONIX [Concomitant]

REACTIONS (5)
  - DEPRESSION [None]
  - DISEASE RECURRENCE [None]
  - FEELING ABNORMAL [None]
  - IMPAIRED GASTRIC EMPTYING [None]
  - MENTAL STATUS CHANGES [None]
